FAERS Safety Report 7575339-1 (Version None)
Quarter: 2011Q2

REPORT INFORMATION
  Report Type: 
  Country: None (occurrence: None)
  Receive Date: 20110627
  Receipt Date: 20110616
  Transmission Date: 20111010
  Serious: Yes (Hospitalization)
  Sender: FDA-Public Use
  Company Number: US-ASTRAZENECA-2011SE37120

PATIENT
  Age: 16945 Day
  Sex: Male
  Weight: 70.3 kg

DRUGS (3)
  1. SEROQUEL [Suspect]
     Indication: DEPRESSION
     Route: 048
     Dates: start: 20080101
  2. OTHER HEART MEDICATIONS [Concomitant]
     Indication: CARDIAC DISORDER
     Route: 048
  3. PLAVIX [Concomitant]
     Indication: CARDIAC DISORDER
     Route: 048

REACTIONS (2)
  - MYOCARDIAL INFARCTION [None]
  - HIP ARTHROPLASTY [None]
